FAERS Safety Report 4919999-X (Version None)
Quarter: 2006Q1

REPORT INFORMATION
  Report Type: 
  Country: None (occurrence: None)
  Receive Date: 20060217
  Receipt Date: 20060203
  Transmission Date: 20060701
  Serious: Yes (Death)
  Sender: FDA-Public Use
  Company Number: 13420

PATIENT
  Age: 76 Year
  Sex: Male

DRUGS (4)
  1. METHOTREXATE [Suspect]
     Indication: RHEUMATOID ARTHRITIS
     Dosage: 10 MG DAILY
  2. ACETYLSALICYLIC ACID SRT [Concomitant]
  3. FUROSEMIDE [Concomitant]
  4. DALTEPARINE [Concomitant]

REACTIONS (16)
  - ACCIDENTAL OVERDOSE [None]
  - ARTERIOSCLEROSIS CORONARY ARTERY [None]
  - BRONCHIAL DISORDER [None]
  - CARDIOMEGALY [None]
  - COLITIS [None]
  - DERMATITIS [None]
  - DRUG TOXICITY [None]
  - HEPATITIS [None]
  - INFLAMMATION [None]
  - MUCOUS MEMBRANE DISORDER [None]
  - MYOCARDIAL FIBROSIS [None]
  - NECROSIS [None]
  - PANCYTOPENIA [None]
  - SEPTIC SHOCK [None]
  - SPLEEN DISORDER [None]
  - TRACHEAL DISORDER [None]
